FAERS Safety Report 23061963 (Version 1)
Quarter: 2023Q4

REPORT INFORMATION
  Report Type: Spontaneous
  Country: US (occurrence: US)
  Receive Date: 20231013
  Receipt Date: 20231013
  Transmission Date: 20240109
  Serious: No
  Sender: FDA-Public Use
  Company Number: US-ABBVIE-5446840

PATIENT
  Sex: Female

DRUGS (1)
  1. IMBRUVICA [Suspect]
     Active Substance: IBRUTINIB
     Indication: Product used for unknown indication
     Dosage: FORM STRENGTH:420 MG?TAKE 1 TABLET BY MOUTH ONCE DAILY. TABLET SHOULD BE TAKEN WITH A GLASS OF WA...
     Route: 048

REACTIONS (1)
  - Muscle spasms [Recovered/Resolved]
